FAERS Safety Report 20139348 (Version 1)
Quarter: 2021Q4

REPORT INFORMATION
  Report Type: Spontaneous
  Country: US (occurrence: US)
  Receive Date: 20211202
  Receipt Date: 20211202
  Transmission Date: 20220303
  Serious: Yes (Death, Other)
  Sender: FDA-Public Use
  Company Number: US-GLAXOSMITHKLINE-US2021GSK247108

PATIENT
  Sex: Female

DRUGS (12)
  1. RANITIDINE [Suspect]
     Active Substance: RANITIDINE
     Indication: Gastrooesophageal reflux disease
     Dosage: 75 MG BOTH
     Route: 065
     Dates: start: 200801, end: 202001
  2. RANITIDINE [Suspect]
     Active Substance: RANITIDINE
     Dosage: 150  MG BOTH
     Route: 065
     Dates: start: 200801, end: 202001
  3. RANITIDINE [Suspect]
     Active Substance: RANITIDINE
     Dosage: 300 UNK, QD
     Route: 065
     Dates: start: 200801, end: 202001
  4. RANITIDINE [Suspect]
     Active Substance: RANITIDINE
     Indication: Gastrooesophageal reflux disease
     Dosage: 75 MG BOTH
     Route: 065
     Dates: start: 200801, end: 202001
  5. RANITIDINE [Suspect]
     Active Substance: RANITIDINE
     Dosage: 150  MG BOTH
     Route: 065
     Dates: start: 200801, end: 202001
  6. RANITIDINE [Suspect]
     Active Substance: RANITIDINE
     Dosage: 300 UNK, QD
     Route: 065
     Dates: start: 200801, end: 202001
  7. RANITIDINE [Suspect]
     Active Substance: RANITIDINE
     Indication: Gastrooesophageal reflux disease
     Dosage: 75 MG BOTH
     Route: 065
     Dates: start: 200801, end: 202001
  8. RANITIDINE [Suspect]
     Active Substance: RANITIDINE
     Dosage: 150  MG BOTH
     Route: 065
     Dates: start: 200801, end: 202001
  9. RANITIDINE [Suspect]
     Active Substance: RANITIDINE
     Dosage: 300 UNK, QD
     Route: 065
     Dates: start: 200801, end: 202001
  10. RANITIDINE [Suspect]
     Active Substance: RANITIDINE
     Indication: Gastrooesophageal reflux disease
     Dosage: 75 MG BOTH
     Route: 065
     Dates: start: 200801, end: 202001
  11. RANITIDINE [Suspect]
     Active Substance: RANITIDINE
     Dosage: 150  MG BOTH
     Route: 065
     Dates: start: 200801, end: 202001
  12. RANITIDINE [Suspect]
     Active Substance: RANITIDINE
     Dosage: 300 UNK, QD
     Route: 065
     Dates: start: 200801, end: 202001

REACTIONS (1)
  - Breast cancer [Fatal]
